FAERS Safety Report 10380236 (Version 1)
Quarter: 2014Q3

REPORT INFORMATION
  Report Type: Spontaneous
  Country: US (occurrence: None)
  Receive Date: 20140811
  Receipt Date: 20140811
  Transmission Date: 20150326
  Serious: Yes (Hospitalization, Disabling)
  Sender: FDA-Public Use
  Company Number: None

PATIENT
  Age: 50 Year
  Sex: Female
  Weight: 54.43 kg

DRUGS (1)
  1. TOPAMAX [Suspect]
     Active Substance: TOPIRAMATE
     Indication: MIGRAINE
     Dosage: 3 PILLS  TWICE DAILY TAKEN BY MOUTH
     Route: 048

REACTIONS (3)
  - Nephrolithiasis [None]
  - Calculus ureteric [None]
  - Renal colic [None]

NARRATIVE: CASE EVENT DATE: 20121125
